FAERS Safety Report 5815969-8 (Version None)
Quarter: 2008Q3

REPORT INFORMATION
  Report Type: 
  Country: None (occurrence: None)
  Receive Date: 20080716
  Receipt Date: 20080430
  Transmission Date: 20090109
  Serious: Yes (Other)
  Sender: FDA-Public Use
  Company Number: US-WYE-H03870608

PATIENT
  Age: 67 Year
  Sex: Female
  Weight: 52.21 kg

DRUGS (1)
  1. MYLOTARG [Suspect]
     Indication: ACUTE MYELOID LEUKAEMIA
     Dosage: 9MG/M2, INTRAVENOUS
     Route: 042
     Dates: start: 20080416

REACTIONS (1)
  - BLOOD CREATININE INCREASED [None]
